FAERS Safety Report 15101163 (Version 1)
Quarter: 2018Q2

REPORT INFORMATION
  Report Type: Spontaneous
  Country: US (occurrence: US)
  Receive Date: 20180611
  Receipt Date: 20180611
  Transmission Date: 20180711
  Serious: No
  Sender: FDA-Public Use
  Company Number: None

PATIENT
  Age: 49 Year
  Sex: Female

DRUGS (1)
  1. VANCOMYCIN 1 GM OR 10 MG FRESENIUS KABI [Suspect]
     Active Substance: VANCOMYCIN
     Indication: SEPSIS
     Route: 042
     Dates: start: 20180529, end: 20180604

REACTIONS (3)
  - Blood urea increased [None]
  - Drug level increased [None]
  - Blood creatinine increased [None]

NARRATIVE: CASE EVENT DATE: 20180604
